FAERS Safety Report 11078954 (Version 1)
Quarter: 2015Q2

REPORT INFORMATION
  Report Type: Report from Study
  Country: US (occurrence: US)
  Receive Date: 20150430
  Receipt Date: 20150430
  Transmission Date: 20150821
  Serious: Yes (Other)
  Sender: FDA-Public Use
  Company Number: US-009507513-1504USA023650

PATIENT
  Age: 57 Year

DRUGS (5)
  1. ETOPOSIDE. [Suspect]
     Active Substance: ETOPOSIDE
     Indication: PLASMA CELL MYELOMA
     Dosage: DOSE: 80 MG, CYCLICAL, DAYS 1,2,3,4 EVERY CYCLE
     Route: 042
     Dates: start: 20110615, end: 20111215
  2. DOXORUBICIN [Suspect]
     Active Substance: DOXORUBICIN
     Indication: PLASMA CELL MYELOMA
     Dosage: DOSE: 20 MG, CYCLICAL, DAYS 1,2,3,4 EVERY CYCLE
     Route: 042
     Dates: start: 20110615, end: 20111215
  3. CISPLATIN. [Suspect]
     Active Substance: CISPLATIN
     Indication: PLASMA CELL MYELOMA
     Dosage: DOSE: 20 MG, CYCLICAL, DAYS 1,2,3,4 EVERY CYCLE
     Route: 042
     Dates: start: 20110615, end: 20111215
  4. CYTOXAN [Suspect]
     Active Substance: CYCLOPHOSPHAMIDE
     Indication: PLASMA CELL MYELOMA
     Dosage: DOSE 800 MG, CYCLICAL, DAYS 1,2,3,4 EVERY CYCLE
     Route: 042
     Dates: start: 20110615, end: 20111215
  5. HEXADROL [Suspect]
     Active Substance: DEXAMETHASONE
     Indication: PLASMA CELL MYELOMA
     Dosage: DOSE: 40 MD, CYCLICAL, DAYS 1,2,3,4 EVERY CYCLE
     Route: 048
     Dates: start: 20110615, end: 20111215

REACTIONS (1)
  - Appendicitis [Unknown]

NARRATIVE: CASE EVENT DATE: 20110706
